FAERS Safety Report 4800101-X (Version None)
Quarter: 2005Q4

REPORT INFORMATION
  Report Type: 
  Country: None (occurrence: None)
  Receive Date: 20051012
  Receipt Date: 20051012
  Transmission Date: 20060501
  Serious: Yes (Hospitalization)
  Sender: FDA-Public Use
  Company Number: None

PATIENT
  Sex: Female
  Weight: 48.5349 kg

DRUGS (5)
  1. DIGOXIN [Suspect]
     Indication: CARDIAC DISORDER
     Dosage: PO [PRIOR TO ADMISION]
     Route: 048
  2. COUMADIN [Concomitant]
  3. LASIX [Concomitant]
  4. ATIVAN [Concomitant]
  5. LOPRESSOR [Concomitant]

REACTIONS (2)
  - ASTHENIA [None]
  - CARDIOACTIVE DRUG LEVEL INCREASED [None]
